FAERS Safety Report 15599297 (Version 1)
Quarter: 2018Q4

REPORT INFORMATION
  Report Type: Spontaneous
  Country: NO (occurrence: NO)
  Receive Date: 20181108
  Receipt Date: 20181108
  Transmission Date: 20190205
  Serious: Yes (Other)
  Sender: FDA-Public Use
  Company Number: NO-ELI_LILLY_AND_COMPANY-NO201811002009

PATIENT
  Age: 46 Year
  Sex: Male

DRUGS (1)
  1. ZYPADHERA [Suspect]
     Active Substance: OLANZAPINE PAMOATE
     Indication: SCHIZOPHRENIA
     Dosage: 300 MG, UNKNOWN
     Route: 030
     Dates: start: 20180822

REACTIONS (9)
  - Dizziness [Recovered/Resolved]
  - Blood pressure increased [Recovered/Resolved]
  - Heart rate increased [Recovered/Resolved]
  - Insomnia [Recovered/Resolved]
  - Stress [Recovered/Resolved]
  - Fall [Recovered/Resolved]
  - Muscle twitching [Recovered/Resolved]
  - Post-injection delirium sedation syndrome [Recovered/Resolved]
  - Restlessness [Recovered/Resolved]

NARRATIVE: CASE EVENT DATE: 20181016
